FAERS Safety Report 8895356 (Version 2)
Quarter: 2013Q1

REPORT INFORMATION
  Report Type: Spontaneous
  Country: US (occurrence: US)
  Receive Date: 20121107
  Receipt Date: 20130214
  Transmission Date: 20140127
  Serious: No
  Sender: FDA-Public Use
  Company Number: US-009507513-1211USA002920

PATIENT
  Age: 47 None
  Sex: Female
  Weight: 75.28 kg

DRUGS (4)
  1. NUVARING [Suspect]
     Indication: PROPHYLAXIS
     Dosage: UNK
     Route: 067
     Dates: start: 2011
  2. LYRICA [Concomitant]
  3. SAVELLA [Concomitant]
  4. XANAX [Concomitant]

REACTIONS (4)
  - Hot flush [Recovering/Resolving]
  - Device expulsion [Unknown]
  - Product quality issue [Unknown]
  - Off label use [Unknown]
